FAERS Safety Report 7844848-X (Version None)
Quarter: 2011Q4

REPORT INFORMATION
  Report Type: 
  Country: None (occurrence: None)
  Receive Date: 20111025
  Receipt Date: 20110930
  Transmission Date: 20120403
  Serious: Yes (Other)
  Sender: FDA-Public Use
  Company Number: JP-GLAXOSMITHKLINE-B0752471A

PATIENT
  Sex: Female

DRUGS (7)
  1. LITHIUM CARBONATE [Concomitant]
  2. CYMBALTA [Concomitant]
     Indication: DEPRESSION
     Dosage: 30MG PER DAY
     Route: 048
     Dates: start: 20110614
  3. EVAMYL [Concomitant]
     Indication: INSOMNIA
     Dosage: 1MG PER DAY
     Route: 048
     Dates: start: 20110614
  4. ALPRAZOLAM [Concomitant]
     Indication: INSOMNIA
     Dosage: .4MG PER DAY
     Route: 048
     Dates: start: 20110614
  5. ZOLOFT [Concomitant]
     Indication: DEPRESSION
     Dosage: 50MG PER DAY
     Route: 048
     Dates: start: 20110531
  6. LAMICTAL [Suspect]
     Indication: DEPRESSION
     Dosage: 25MG PER DAY
     Route: 048
     Dates: start: 20110726, end: 20110831
  7. DEPAKENE [Concomitant]

REACTIONS (8)
  - WHITE BLOOD CELL COUNT INCREASED [None]
  - ALANINE AMINOTRANSFERASE INCREASED [None]
  - PRURITUS GENERALISED [None]
  - EOSINOPHIL PERCENTAGE INCREASED [None]
  - DRUG ERUPTION [None]
  - BLOOD LACTATE DEHYDROGENASE INCREASED [None]
  - LYMPHOCYTE PERCENTAGE DECREASED [None]
  - GAMMA-GLUTAMYLTRANSFERASE INCREASED [None]
